FAERS Safety Report 18574279 (Version 1)
Quarter: 2020Q4

REPORT INFORMATION
  Report Type: Spontaneous
  Country: US (occurrence: US)
  Receive Date: 20201203
  Receipt Date: 20201203
  Transmission Date: 20210114
  Serious: No
  Sender: FDA-Public Use
  Company Number: US-AMNEAL PHARMACEUTICALS-2019-AMRX-03074

PATIENT
  Sex: Female

DRUGS (2)
  1. RANITIDINE. [Suspect]
     Active Substance: RANITIDINE
     Indication: PRODUCT USED FOR UNKNOWN INDICATION
     Dosage: 1 DOSAGE FORM, 2 /DAY
     Route: 048
     Dates: start: 2019
  2. RANITIDINE. [Suspect]
     Active Substance: RANITIDINE
     Dosage: 1 DOSAGE FORM, QD
     Route: 048
     Dates: start: 2019

REACTIONS (4)
  - Pain [Recovering/Resolving]
  - Vision blurred [Unknown]
  - Blister [Recovering/Resolving]
  - Intentional product use issue [Unknown]

NARRATIVE: CASE EVENT DATE: 2019
